FAERS Safety Report 8559513-3 (Version None)
Quarter: 2012Q3

REPORT INFORMATION
  Report Type: 
  Country: None (occurrence: None)
  Receive Date: 20120802
  Receipt Date: 20120725
  Transmission Date: 20120928
  Serious: Yes (Hospitalization)
  Sender: FDA-Public Use
  Company Number: US-BAYER-2011-075300

PATIENT
  Age: 30 Year
  Sex: Female
  Weight: 90.703 kg

DRUGS (6)
  1. SUDAFED 12 HOUR [Concomitant]
     Dosage: UNK UNK, BID
  2. CLARITHROMYCIN [Concomitant]
  3. ZEBUTAL [Concomitant]
     Indication: MIGRAINE
     Dosage: UNK UNK, PRN
  4. PRILOSEC [Concomitant]
  5. NEXIUM [Concomitant]
  6. DROSPIRENONE AND ETHINYL ESTRADIOL [Suspect]
     Dosage: UNK
     Dates: start: 20070101, end: 20090101

REACTIONS (3)
  - GALLBLADDER INJURY [None]
  - BILIARY DYSKINESIA [None]
  - INJURY [None]
